FAERS Safety Report 19659165 (Version 2)
Quarter: 2022Q2

REPORT INFORMATION
  Report Type: Spontaneous
  Country: IT (occurrence: None)
  Receive Date: 20210805
  Receipt Date: 20220527
  Transmission Date: 20220721
  Serious: Yes (Other)
  Sender: FDA-Public Use
  Company Number: IT-ROCHE-2883825

PATIENT
  Age: 57 Year
  Sex: Female

DRUGS (2)
  1. ATEZOLIZUMAB [Suspect]
     Active Substance: ATEZOLIZUMAB
     Indication: Triple negative breast cancer
     Dosage: DAYS 1-15
     Route: 065
     Dates: start: 202002
  2. PACLITAXEL [Suspect]
     Active Substance: PACLITAXEL
     Indication: Triple negative breast cancer
     Dosage: 100 MG/MQ, DAYS 1-8-15 EVERY 28 DAYS.
     Route: 065
     Dates: start: 202002

REACTIONS (4)
  - Neutropenia [Unknown]
  - Neoplasm progression [Unknown]
  - Asthenia [Unknown]
  - Diarrhoea [Unknown]

NARRATIVE: CASE EVENT DATE: 20201201
